FAERS Safety Report 8757942 (Version 1)
Quarter: 2012Q4

REPORT INFORMATION
  Report Type: 
  Country: US (occurrence: US)
  Receive Date: 20120828
  Receipt Date: 20120828
  Transmission Date: 20130627
  Serious: Yes (Other)
  Sender: FDA-Public Use
  Company Number: US-PFIZER INC-2012208652

PATIENT
  Age: 55 Year
  Sex: Female
  Weight: 83.9 kg

DRUGS (5)
  1. CELEBREX [Suspect]
     Indication: OSTEOARTHRITIS
     Dosage: 200 mg, daily
  2. CELEBREX [Suspect]
     Indication: RHEUMATOID ARTHRITIS
  3. VIOXX [Suspect]
     Indication: OSTEOARTHRITIS
     Dosage: UNK
  4. VIOXX [Suspect]
     Indication: RHEUMATOID ARTHRITIS
  5. LISINOPRIL W/HYDROCHLOROTHIAZIDE [Concomitant]
     Indication: HYPERTENSION
     Dosage: 20/12.5 daily

REACTIONS (4)
  - Basal cell carcinoma [Unknown]
  - Pneumonia viral [Recovered/Resolved]
  - Diabetes mellitus [Unknown]
  - Malaise [Unknown]
